FAERS Safety Report 6335627-3 (Version None)
Quarter: 2009Q3

REPORT INFORMATION
  Report Type: 
  Country: None (occurrence: None)
  Receive Date: 20090831
  Receipt Date: 20090819
  Transmission Date: 20100115
  Serious: Yes (Other)
  Sender: FDA-Public Use
  Company Number: US-PFIZER INC-2009229602

PATIENT
  Sex: Female
  Weight: 68.027 kg

DRUGS (3)
  1. XALATAN [Suspect]
     Indication: GLAUCOMA
     Dosage: 1 GTT, 1X/DAY
     Route: 047
     Dates: start: 20070101, end: 20070401
  2. LEVOXYL [Concomitant]
     Dosage: UNK
  3. PREMPRO [Concomitant]
     Dosage: 1 DF, 1X/DAY

REACTIONS (6)
  - BRAIN NEOPLASM [None]
  - DIZZINESS [None]
  - DRUG HYPERSENSITIVITY [None]
  - HEADACHE [None]
  - SLEEP DISORDER [None]
  - VERTIGO [None]
